FAERS Safety Report 15287515 (Version 1)
Quarter: 2018Q3

REPORT INFORMATION
  Report Type: Spontaneous
  Country: BE (occurrence: BE)
  Receive Date: 20180817
  Receipt Date: 20180817
  Transmission Date: 20181010
  Serious: Yes (Other)
  Sender: FDA-Public Use
  Company Number: BE-TEVA-2018-BE-942734

PATIENT
  Sex: Male

DRUGS (1)
  1. AMOXICILLINE [Suspect]
     Active Substance: AMOXICILLIN
     Dosage: COMPRESSED
     Route: 048

REACTIONS (2)
  - Dyspnoea [Unknown]
  - Rash [Unknown]
